FAERS Safety Report 8230817-7 (Version None)
Quarter: 2012Q1

REPORT INFORMATION
  Report Type: 
  Country: None (occurrence: None)
  Receive Date: 20120323
  Receipt Date: 20120313
  Transmission Date: 20120608
  Serious: Yes (Other)
  Sender: FDA-Public Use
  Company Number: JP-AMGEN-JPNCT2012018253

PATIENT
  Age: 64 Year
  Sex: Male
  Weight: 69 kg

DRUGS (2)
  1. PANITUMUMAB [Suspect]
     Indication: COLORECTAL CANCER
     Dosage: 400 MG, Q2WK
     Route: 041
     Dates: start: 20111213, end: 20111213
  2. PANITUMUMAB [Suspect]
     Dosage: 400 MG, Q2WK
     Route: 041
     Dates: start: 20120117

REACTIONS (5)
  - ABDOMINAL DISCOMFORT [None]
  - DERMATITIS ACNEIFORM [None]
  - PRURITUS [None]
  - GLOSSODYNIA [None]
  - DRY SKIN [None]
